FAERS Safety Report 13124762 (Version 1)
Quarter: 2017Q1

REPORT INFORMATION
  Report Type: Report from Study
  Country: ES (occurrence: ES)
  Receive Date: 20170118
  Receipt Date: 20170118
  Transmission Date: 20170428
  Serious: Yes (Other)
  Sender: FDA-Public Use
  Company Number: ES-ROCHE-1878281

PATIENT

DRUGS (3)
  1. CARBOPLATIN. [Suspect]
     Active Substance: CARBOPLATIN
     Indication: HER-2 POSITIVE BREAST CANCER
     Dosage: AUC6
     Route: 065
  2. TRASTUZUMAB [Suspect]
     Active Substance: TRASTUZUMAB
     Indication: HER-2 POSITIVE BREAST CANCER
     Dosage: 8 MG/KG LOADING DOSE
     Route: 042
  3. DOCETAXEL. [Suspect]
     Active Substance: DOCETAXEL
     Indication: HER-2 POSITIVE BREAST CANCER
     Route: 065

REACTIONS (20)
  - Neutropenia [Unknown]
  - Febrile neutropenia [Unknown]
  - Anaemia [Unknown]
  - Hepatotoxicity [Unknown]
  - Ejection fraction decreased [Unknown]
  - Musculoskeletal pain [Unknown]
  - Asthenia [Unknown]
  - Skin toxicity [Unknown]
  - Neuropathy peripheral [Unknown]
  - Nausea [Unknown]
  - Hypersensitivity [Unknown]
  - Nephropathy toxic [Unknown]
  - Stomatitis [Unknown]
  - Oedema [Unknown]
  - Diarrhoea [Unknown]
  - Nail disorder [Unknown]
  - Vomiting [Unknown]
  - Bone marrow toxicity [Unknown]
  - Ill-defined disorder [Unknown]
  - Lacrimation increased [Unknown]
